FAERS Safety Report 6839364-8 (Version None)
Quarter: 2010Q3

REPORT INFORMATION
  Report Type: 
  Country: None (occurrence: None)
  Receive Date: 20100714
  Receipt Date: 20100707
  Transmission Date: 20110219
  Serious: Yes (Death)
  Sender: FDA-Public Use
  Company Number: US-ROXANE LABORATORIES, INC.-2010-DE-03635GD

PATIENT
  Age: 37 Year
  Sex: Male

DRUGS (1)
  1. MORPHINE SULFATE [Suspect]
     Dosage: A LARGE DOSE

REACTIONS (3)
  - BRAIN DEATH [None]
  - OVERDOSE [None]
  - RESPIRATORY ARREST [None]
